FAERS Safety Report 12700089 (Version 2)
Quarter: 2017Q1

REPORT INFORMATION
  Report Type: Spontaneous
  Country: US (occurrence: US)
  Receive Date: 20160830
  Receipt Date: 20170309
  Transmission Date: 20170428
  Serious: Yes (Death, Other)
  Sender: FDA-Public Use
  Company Number: US-PFIZER INC-2016402760

PATIENT
  Age: 29 Year
  Sex: Female

DRUGS (1)
  1. EPINEPHRINE. [Suspect]
     Active Substance: EPINEPHRINE
     Dosage: UNK (1:1,000 SOLUTION)

REACTIONS (4)
  - Wrong drug administered [Fatal]
  - Accidental poisoning [Fatal]
  - Pallor [Unknown]
  - Headache [Unknown]
